FAERS Safety Report 5799711-5 (Version None)
Quarter: 2008Q3

REPORT INFORMATION
  Report Type: 
  Country: None (occurrence: None)
  Receive Date: 20080702
  Receipt Date: 20080702
  Transmission Date: 20090109
  Serious: Yes (Hospitalization)
  Sender: FDA-Public Use
  Company Number: None

PATIENT
  Sex: Female
  Weight: 52.1637 kg

DRUGS (6)
  1. DIGITEK 0.125MG BERTEK [Suspect]
     Indication: ATRIAL FIBRILLATION
     Dosage: 0.125MG EVERY OTHER DAY ORALLY, 2/2008 TO PRESENT
     Route: 048
     Dates: start: 20080201
  2. DIGITEK 0.125MG BERTEK [Suspect]
     Indication: ATRIAL FLUTTER
     Dosage: 0.125MG EVERY OTHER DAY ORALLY, 2/2008 TO PRESENT
     Route: 048
     Dates: start: 20080201
  3. DIOVAN [Concomitant]
  4. FUROSEMIDE [Concomitant]
  5. LIPITOR [Concomitant]
  6. DILTIAZEM HCL [Concomitant]

REACTIONS (5)
  - ASTHENIA [None]
  - DIZZINESS [None]
  - HEART RATE DECREASED [None]
  - PHARMACEUTICAL PRODUCT COMPLAINT [None]
  - THERAPEUTIC AGENT TOXICITY [None]
